FAERS Safety Report 15974061 (Version 2)
Quarter: 2019Q3

REPORT INFORMATION
  Report Type: Report from Study
  Country: None (occurrence: US)
  Receive Date: 20190217
  Receipt Date: 20190717
  Transmission Date: 20191004
  Serious: Yes (Hospitalization, Other)
  Sender: FDA-Public Use
  Company Number: US-ABBVIE-18K-163-2244724-00

PATIENT
  Sex: Male
  Weight: 63.56 kg

DRUGS (4)
  1. CORTISONE [Concomitant]
     Active Substance: CORTISONE
     Indication: ARTHRALGIA
  2. HUMIRA [Suspect]
     Active Substance: ADALIMUMAB
     Indication: COLITIS ULCERATIVE
  3. TOUJEO [Concomitant]
     Active Substance: INSULIN GLARGINE
     Indication: TYPE 2 DIABETES MELLITUS
  4. HUMIRA [Suspect]
     Active Substance: ADALIMUMAB
     Indication: CROHN^S DISEASE
     Route: 058
     Dates: start: 2016, end: 20180108

REACTIONS (15)
  - Intestinal operation [Recovered/Resolved]
  - Fall [Unknown]
  - Intervertebral disc protrusion [Recovered/Resolved]
  - Spinal osteoarthritis [Unknown]
  - Abscess limb [Recovering/Resolving]
  - Headache [Recovering/Resolving]
  - Pneumonia [Recovered/Resolved]
  - Rib fracture [Recovered/Resolved]
  - Respiratory tract congestion [Recovering/Resolving]
  - Nerve compression [Recovered/Resolved]
  - Nerve injury [Recovered/Resolved]
  - Pneumonia [Recovered/Resolved]
  - Large intestine polyp [Recovered/Resolved]
  - Viral infection [Not Recovered/Not Resolved]
  - Fatigue [Recovering/Resolving]

NARRATIVE: CASE EVENT DATE: 201801
